FAERS Safety Report 14336952 (Version 2)
Quarter: 2018Q1

REPORT INFORMATION
  Report Type: Spontaneous
  Country: ES (occurrence: ES)
  Receive Date: 20171229
  Receipt Date: 20180308
  Transmission Date: 20180509
  Serious: Yes (Death, Other)
  Sender: FDA-Public Use
  Company Number: ES-ELI_LILLY_AND_COMPANY-ES201712010784

PATIENT
  Age: 22 Year
  Sex: Female

DRUGS (6)
  1. TAXOL [Suspect]
     Active Substance: PACLITAXEL
     Indication: ADENOCARCINOMA GASTRIC
     Dosage: 110 MG, CYCLICAL
     Route: 065
     Dates: start: 20170320, end: 20170526
  2. ENANTYUM [Concomitant]
     Active Substance: DEXKETOPROFEN TROMETAMOL
     Indication: PREMENSTRUAL SYNDROME
     Dosage: 10 DF, MONTHLY (1/M)
     Route: 065
  3. LYRICA [Concomitant]
     Active Substance: PREGABALIN
     Indication: PRODUCT USED FOR UNKNOWN INDICATION
     Dosage: UNK UNK, UNKNOWN
     Route: 065
  4. RAMUCIRUMAB [Suspect]
     Active Substance: RAMUCIRUMAB
     Dosage: 380 MG, CYCLICAL (BIWEEKLY)
     Route: 065
     Dates: start: 20170904, end: 20171213
  5. RAMUCIRUMAB [Suspect]
     Active Substance: RAMUCIRUMAB
     Indication: ADENOCARCINOMA GASTRIC
     Dosage: 380 MG, CYCLICAL
     Route: 065
     Dates: start: 20170320, end: 20170526
  6. TAXOL [Suspect]
     Active Substance: PACLITAXEL
     Dosage: 110 MG, CYCLICAL (WEEKLY)
     Route: 065
     Dates: start: 20170904, end: 20171115

REACTIONS (10)
  - Hyperbilirubinaemia [Unknown]
  - Epstein-Barr virus antibody positive [Unknown]
  - Malignant neoplasm progression [Unknown]
  - Haematotoxicity [Unknown]
  - Death [Fatal]
  - Cholestasis [Unknown]
  - Infection [Unknown]
  - Hepatitis toxic [Unknown]
  - Pleural effusion [Unknown]
  - Pneumothorax [Recovered/Resolved]

NARRATIVE: CASE EVENT DATE: 20171213
